FAERS Safety Report 7331922-X (Version None)
Quarter: 2011Q1

REPORT INFORMATION
  Report Type: 
  Country: None (occurrence: None)
  Receive Date: 20110304
  Receipt Date: 20100503
  Transmission Date: 20110831
  Serious: Yes (Other)
  Sender: FDA-Public Use
  Company Number: US-PFIZER INC-2010034377

PATIENT
  Sex: Male

DRUGS (17)
  1. DILANTIN [Suspect]
     Indication: CONVULSION
     Dosage: 300 MG, 1X/DAY
     Route: 048
  2. NORVASC [Concomitant]
     Dosage: UNK
  3. ASPIRIN [Concomitant]
     Dosage: UNK
  4. NITROGLYCERIN [Concomitant]
     Dosage: UNK
     Route: 060
  5. ZOCOR [Concomitant]
     Dosage: UNK
  6. GLYBURIDE [Concomitant]
     Dosage: UNK
  7. DILANTIN [Suspect]
     Dosage: 100 MG, 3X/DAY
     Route: 042
  8. PRILOSEC [Concomitant]
     Dosage: UNK
  9. TOPAMAX [Concomitant]
     Dosage: UNK
  10. DILANTIN [Suspect]
     Dosage: 200 MG, UNK
     Route: 048
     Dates: start: 20081224
  11. VANCOMYCIN [Concomitant]
     Dosage: UNK
  12. ROCEPHIN [Concomitant]
     Dosage: UNK
  13. INSULIN [Concomitant]
     Dosage: UNK
  14. PROMETHAZINE [Concomitant]
     Dosage: UNK
  15. OMEGA-3 TRIGLYCERIDES [Concomitant]
     Dosage: UNK
  16. LACTULOSE [Concomitant]
     Dosage: UNK
  17. ACETAMINOPHEN [Concomitant]
     Dosage: UNK

REACTIONS (1)
  - STEVENS-JOHNSON SYNDROME [None]
